FAERS Safety Report 8790652 (Version 1)
Quarter: 2012Q4

REPORT INFORMATION
  Report Type: Spontaneous
  Country: US (occurrence: None)
  Receive Date: 20120912
  Receipt Date: 20120912
  Transmission Date: 20130627
  Serious: Yes (Disabling)
  Sender: FDA-Public Use
  Company Number: None

PATIENT
  Sex: Male
  Weight: 61.24 kg

DRUGS (2)
  1. FLAGYL [Suspect]
     Indication: C.DIFFICILE DIARRHEA
     Route: 048
  2. VANCOMYCIN [Suspect]
     Route: 048

REACTIONS (4)
  - Neuropathy peripheral [None]
  - Ototoxicity [None]
  - Hyperacusis [None]
  - Hearing impaired [None]
